FAERS Safety Report 10042682 (Version 2)
Quarter: 2014Q2

REPORT INFORMATION
  Report Type: Spontaneous
  Country: DE (occurrence: DE)
  Receive Date: 20140327
  Receipt Date: 20140501
  Transmission Date: 20141212
  Serious: Yes (Other)
  Sender: FDA-Public Use
  Company Number: DE-WATSON-2014-05580

PATIENT
  Sex: Female
  Weight: 79 kg

DRUGS (8)
  1. CARBOPLATIN ACTAVIS [Suspect]
     Indication: OVARIAN CANCER
     Dosage: 530 MG, DAILY
     Route: 042
     Dates: start: 20131203, end: 20131203
  2. CARBOPLATIN ACTAVIS [Suspect]
     Dosage: 460 MG, DAILY
     Route: 042
     Dates: start: 20140225, end: 20140225
  3. PACLITAXEL FRESENIUS KABI [Concomitant]
     Indication: PRODUCT USED FOR UNKNOWN INDICATION
     Dosage: 152 MG, UNK
     Route: 042
     Dates: start: 20131203, end: 20131203
  4. PACLITAXEL FRESENIUS KABI [Concomitant]
     Dosage: 152 MG, UNK
     Route: 042
     Dates: start: 20131210, end: 20131210
  5. PACLITAXEL FRESENIUS KABI [Concomitant]
     Dosage: 152 MG, UNK
     Route: 042
     Dates: start: 20131217, end: 20131217
  6. PACLITAXEL FRESENIUS KABI [Concomitant]
     Dosage: 1140 MG, UNK
     Route: 042
     Dates: start: 20140304, end: 20140304
  7. AVASTIN                            /00848101/ [Concomitant]
     Indication: PRODUCT USED FOR UNKNOWN INDICATION
     Dosage: 1140 MG, UNK
     Route: 042
     Dates: start: 20131203, end: 20131203
  8. AVASTIN                            /00848101/ [Concomitant]
     Dosage: 1185 MG, UNK
     Route: 042
     Dates: start: 20140225, end: 20140225

REACTIONS (2)
  - Neoplasm progression [Not Recovered/Not Resolved]
  - Drug ineffective [Not Recovered/Not Resolved]
